FAERS Safety Report 20704604 (Version 2)
Quarter: 2022Q2

REPORT INFORMATION
  Report Type: Report from Study
  Country: CN (occurrence: CN)
  Receive Date: 20220413
  Receipt Date: 20220413
  Transmission Date: 20220721
  Serious: Yes (Death, Other)
  Sender: FDA-Public Use
  Company Number: CN-PFIZER INC-202200531464

PATIENT

DRUGS (3)
  1. CYTARABINE [Suspect]
     Active Substance: CYTARABINE
     Indication: Acute myeloid leukaemia
     Dosage: UNK
  2. CLADRIBINE [Suspect]
     Active Substance: CLADRIBINE
     Indication: Acute myeloid leukaemia
     Dosage: UNK
  3. GRANULOCYTE COLONY-STIMULATING FACTOR NOS [Suspect]
     Active Substance: GRANULOCYTE COLONY-STIMULATING FACTOR NOS
     Indication: Acute myeloid leukaemia
     Dosage: UNK

REACTIONS (2)
  - Klebsiella bacteraemia [Fatal]
  - Myelosuppression [Unknown]
